FAERS Safety Report 10380286 (Version 1)
Quarter: 2014Q1

REPORT INFORMATION
  Report Type: Spontaneous
  Country: US (occurrence: None)
  Receive Date: 20140306
  Receipt Date: 20140306
  Transmission Date: 20141002
  Serious: Yes (Other)
  Sender: FDA-Public Use
  Company Number: 163-21880-13073283

PATIENT
  Age: 67 Year
  Sex: Male

DRUGS (9)
  1. REVLIMID (LENALIDOMIDE) (CAPSULES) [Suspect]
     Indication: PLASMA CELL MYELOMA
     Route: 048
     Dates: start: 20130405, end: 201306
  2. ALLOPURINOL [Concomitant]
  3. ASPIRIN LOW DOSE (ACETYLSALICYLIC ACID) [Concomitant]
  4. BARACLUDE (ENTECAVIR) [Concomitant]
  5. CARVEDILOL [Concomitant]
  6. METFORMIN HCL (METFORMIN HYDROCHLORIDE) [Concomitant]
  7. SIMVASTATIN [Concomitant]
  8. TAMSULOSIN HCL (TAMSULOSIN HYDROCHLORIDE) [Concomitant]
  9. TRIAMTERENE/HYDROCHLOROTHIAZIDE (DYAZIDE) [Concomitant]

REACTIONS (1)
  - Skin discolouration [None]
